FAERS Safety Report 5377236-9 (Version None)
Quarter: 2007Q3

REPORT INFORMATION
  Report Type: 
  Country: None (occurrence: None)
  Receive Date: 20070703
  Receipt Date: 20070621
  Transmission Date: 20080115
  Serious: Yes (Hospitalization, Disabling)
  Sender: FDA-Public Use
  Company Number: US-ELI_LILLY_AND_COMPANY-US200704002060

PATIENT
  Age: 70 Year
  Sex: Female

DRUGS (5)
  1. FORTEO [Suspect]
     Indication: OSTEOPOROSIS
     Dosage: 20 UG, DAILY (1/D)
     Dates: start: 20051201, end: 20070215
  2. XANAX [Concomitant]
  3. NEXIUM [Concomitant]
  4. FLONASE [Concomitant]
  5. ADVIL                              /00109201/ [Concomitant]

REACTIONS (3)
  - CATARACT [None]
  - MACULOPATHY [None]
  - SCOTOMA [None]
